FAERS Safety Report 24774866 (Version 1)
Quarter: 2024Q4

REPORT INFORMATION
  Report Type: Spontaneous
  Country: BR (occurrence: BR)
  Receive Date: 20241226
  Receipt Date: 20241226
  Transmission Date: 20250114
  Serious: Yes (Hospitalization)
  Sender: AMGEN
  Company Number: BR-AMGEN-BRASP2024249922

PATIENT
  Age: 66 Year
  Sex: Female

DRUGS (1)
  1. REPATHA [Suspect]
     Active Substance: EVOLOCUMAB
     Indication: Dyslipidaemia
     Dosage: 140 MILLIGRAM, Q2WK
     Route: 065
     Dates: start: 2023

REACTIONS (1)
  - Body fat disorder [Unknown]

NARRATIVE: CASE EVENT DATE: 20241101
